FAERS Safety Report 4730165-3 (Version None)
Quarter: 2005Q3

REPORT INFORMATION
  Report Type: 
  Country: None (occurrence: None)
  Receive Date: 20050729
  Receipt Date: 20050729
  Transmission Date: 20060218
  Serious: Yes (Hospitalization, Other)
  Sender: FDA-Public Use
  Company Number: None

PATIENT
  Sex: Male
  Weight: 120 kg

DRUGS (3)
  1. METHOTREXATE [Suspect]
     Indication: GLIOBLASTOMA MULTIFORME
     Dates: start: 20050714, end: 20050714
  2. METHOTREXATE [Suspect]
     Indication: GLIOBLASTOMA MULTIFORME
     Dates: start: 20050713
  3. DEXAMETHASONE [Concomitant]

REACTIONS (1)
  - DEEP VEIN THROMBOSIS [None]
